FAERS Safety Report 5390536-1 (Version None)
Quarter: 2007Q3

REPORT INFORMATION
  Report Type: 
  Country: None (occurrence: None)
  Receive Date: 20070718
  Receipt Date: 20070227
  Transmission Date: 20080115
  Serious: No
  Sender: FDA-Public Use
  Company Number: US-KINGPHARMUSA00001-K200700226

PATIENT

DRUGS (7)
  1. LEVOXYL [Suspect]
     Indication: HYPOTHYROIDISM
     Dosage: 75 MCG, QD
     Route: 048
     Dates: start: 20010101, end: 20010101
  2. LEVOXYL [Suspect]
     Dosage: 37.5 MCG, QD
     Dates: start: 20010101, end: 20010101
  3. LEVOXYL [Suspect]
     Dosage: 50 MCG, QD
     Route: 048
     Dates: start: 20020901, end: 20070219
  4. LEVOXYL [Suspect]
     Dosage: 75 MCG, QD
     Route: 048
     Dates: start: 20070219
  5. PRILOSEC /00661201/ [Concomitant]
     Indication: DYSPEPSIA
  6. LEVSIN [Concomitant]
     Indication: IRRITABLE BOWEL SYNDROME
  7. ALLEGRA [Concomitant]
     Indication: HYPERSENSITIVITY

REACTIONS (3)
  - FEELING ABNORMAL [None]
  - HYPERHIDROSIS [None]
  - MYALGIA [None]
